FAERS Safety Report 6019827-8 (Version None)
Quarter: 2008Q4

REPORT INFORMATION
  Report Type: 
  Country: None (occurrence: None)
  Receive Date: 20081224
  Receipt Date: 20081209
  Transmission Date: 20090506
  Serious: Yes (Death, Life-Threatening, Hospitalization)
  Sender: FDA-Public Use
  Company Number: GB-B.I. PHARMACEUTICALS,INC./RIDGEFIELD-2003-UK-00305UK

PATIENT
  Sex: Male

DRUGS (13)
  1. VIRAMUNE [Suspect]
     Indication: HIV TEST POSITIVE
     Dosage: 200MG
     Route: 048
     Dates: start: 20030408, end: 20030417
  2. TENOFOVIR [Suspect]
     Indication: HIV TEST POSITIVE
     Dosage: 300MG
     Route: 048
     Dates: start: 20030408, end: 20030417
  3. LAMIVUDINE [Suspect]
     Indication: HIV TEST POSITIVE
     Dosage: 300MG
     Dates: start: 20030408, end: 20030417
  4. CIPROFLOXACIN HCL [Suspect]
     Indication: PNEUMOCYSTIS JIROVECI PNEUMONIA
  5. CLARITHROMYCIN [Suspect]
     Indication: PNEUMOCYSTIS JIROVECI PNEUMONIA
  6. COTRIM [Suspect]
     Indication: PNEUMOCYSTIS JIROVECI PNEUMONIA
  7. SEPTRIN [Concomitant]
     Indication: HIV TEST POSITIVE
     Dosage: 3 TIMES A WEEK
     Route: 048
     Dates: start: 20030408, end: 20030417
  8. LOPERAMIDE HCL [Concomitant]
     Indication: DIARRHOEA
  9. BACTRIM [Concomitant]
     Indication: PROPHYLAXIS
  10. ZIDOVUDINE [Concomitant]
  11. IBUPROFEN TABLETS [Concomitant]
     Indication: PAIN IN EXTREMITY
     Dosage: 200MG
     Route: 048
  12. EFAVIRENZ [Concomitant]
     Indication: HIV INFECTION
     Dates: start: 20030311, end: 20030327
  13. COMBIVIR [Concomitant]
     Indication: HIV INFECTION
     Dates: start: 20030311, end: 20030327

REACTIONS (17)
  - AGITATION [None]
  - ALANINE AMINOTRANSFERASE INCREASED [None]
  - BIOPSY LIVER ABNORMAL [None]
  - BLOOD ALKALINE PHOSPHATASE INCREASED [None]
  - BLOOD BILIRUBIN INCREASED [None]
  - CHOLANGITIS [None]
  - CONFUSIONAL STATE [None]
  - COUGH [None]
  - HAEMOGLOBIN DECREASED [None]
  - HEPATIC FAILURE [None]
  - HEPATOTOXICITY [None]
  - PAIN IN EXTREMITY [None]
  - PYREXIA [None]
  - SCLERAL DISCOLOURATION [None]
  - SEPSIS [None]
  - VANISHING BILE DUCT SYNDROME [None]
  - VOMITING [None]
